FAERS Safety Report 7814851-4 (Version None)
Quarter: 2011Q4

REPORT INFORMATION
  Report Type: 
  Country: None (occurrence: None)
  Receive Date: 20111014
  Receipt Date: 20111010
  Transmission Date: 20120403
  Serious: Yes (Other)
  Sender: FDA-Public Use
  Company Number: AU-ROCHE-1003523

PATIENT
  Sex: Female

DRUGS (3)
  1. METHOTREXATE [Suspect]
     Indication: PRODUCT USED FOR UNKNOWN INDICATION
     Dates: end: 20110401
  2. PLAQUENIL [Concomitant]
     Dates: start: 20110601
  3. ACTEMRA [Suspect]
     Indication: RHEUMATOID ARTHRITIS

REACTIONS (2)
  - NASAL OBSTRUCTION [None]
  - BRONCHIECTASIS [None]
